FAERS Safety Report 7774824-7 (Version None)
Quarter: 2011Q3

REPORT INFORMATION
  Report Type: 
  Country: None (occurrence: None)
  Receive Date: 20110923
  Receipt Date: 20110916
  Transmission Date: 20111222
  Serious: Yes (Other)
  Sender: FDA-Public Use
  Company Number: FR-ALEXION PHARMACEUTICALS INC.-A201101431

PATIENT
  Sex: Male

DRUGS (2)
  1. SOLIRIS [Suspect]
     Dosage: 900 MG UNK
     Dates: start: 20110912
  2. SOLIRIS [Suspect]
     Indication: HAEMOLYTIC URAEMIC SYNDROME
     Dosage: 600 MG UNK
     Route: 042
     Dates: start: 20110831

REACTIONS (4)
  - PNEUMONIA PRIMARY ATYPICAL [None]
  - PYREXIA [None]
  - LIPASE INCREASED [None]
  - ABDOMINAL PAIN [None]
